FAERS Safety Report 6060206-5 (Version None)
Quarter: 2009Q1

REPORT INFORMATION
  Report Type: 
  Country: None (occurrence: None)
  Receive Date: 20090128
  Receipt Date: 20080121
  Transmission Date: 20090719
  Serious: Yes (Other)
  Sender: FDA-Public Use
  Company Number: 2009SP001465

PATIENT
  Age: 55 Year
  Sex: Female

DRUGS (3)
  1. PEG-INTRON [Suspect]
     Indication: HEPATITIS C
     Dosage: SC
     Route: 058
     Dates: start: 20080131
  2. RIBAVIRIN [Suspect]
     Indication: HEPATITIS C
     Dosage: PO
     Route: 048
     Dates: start: 20080131
  3. KLONOPIN [Suspect]
     Indication: INSOMNIA

REACTIONS (18)
  - ALOPECIA [None]
  - AMENORRHOEA [None]
  - ASTHENIA [None]
  - DRY MOUTH [None]
  - EMOTIONAL DISORDER [None]
  - HAIR COLOUR CHANGES [None]
  - HAIR TEXTURE ABNORMAL [None]
  - HYPOTHYROIDISM [None]
  - INSOMNIA [None]
  - KIDNEY INFECTION [None]
  - LABORATORY TEST ABNORMAL [None]
  - MALAISE [None]
  - MEMORY IMPAIRMENT [None]
  - NAUSEA [None]
  - PAIN [None]
  - SOMNOLENCE [None]
  - THIRST [None]
  - VOMITING [None]
